FAERS Safety Report 12771097 (Version 2)
Quarter: 2016Q3

REPORT INFORMATION
  Report Type: Spontaneous
  Country: US (occurrence: US)
  Receive Date: 20160922
  Receipt Date: 20160927
  Transmission Date: 20161109
  Serious: Yes (Death)
  Sender: FDA-Public Use
  Company Number: US-CELGENEUS-USA-2016084843

PATIENT
  Age: 83 Year
  Sex: Female
  Weight: 46.67 kg

DRUGS (1)
  1. REVLIMID [Suspect]
     Active Substance: LENALIDOMIDE
     Indication: MYELODYSPLASTIC SYNDROME
     Dosage: 10 MILLIGRAM
     Route: 048
     Dates: start: 20160630, end: 2016

REACTIONS (3)
  - Myelodysplastic syndrome [Fatal]
  - Acute respiratory failure [Fatal]
  - Treatment failure [Unknown]

NARRATIVE: CASE EVENT DATE: 2016
